FAERS Safety Report 5959124-X (Version None)
Quarter: 2008Q4

REPORT INFORMATION
  Report Type: 
  Country: None (occurrence: None)
  Receive Date: 20081120
  Receipt Date: 20080115
  Transmission Date: 20090506
  Serious: No
  Sender: FDA-Public Use
  Company Number: A0703346A

PATIENT
  Age: 43 Year
  Sex: Male

DRUGS (6)
  1. BUPROPION HCL [Suspect]
     Indication: DEPRESSION
     Dosage: 150MG IN THE MORNING
     Route: 048
     Dates: start: 20080106, end: 20080112
  2. GLUCOSAMINE CHONDROITIN [Concomitant]
  3. LOVAZA [Concomitant]
  4. VITAMIN E [Concomitant]
  5. VITAMIN D [Concomitant]
  6. MULTI-VITAMIN [Concomitant]

REACTIONS (5)
  - DISORIENTATION [None]
  - DIZZINESS [None]
  - INSOMNIA [None]
  - PRODUCT QUALITY ISSUE [None]
  - STRESS [None]
